FAERS Safety Report 13786736 (Version 1)
Quarter: 2017Q3

REPORT INFORMATION
  Report Type: Spontaneous
  Country: None (occurrence: US)
  Receive Date: 20170725
  Receipt Date: 20170725
  Transmission Date: 20171127
  Serious: Yes (Life-Threatening, Hospitalization, Disabling, Other)
  Sender: FDA-Public Use
  Company Number: None

PATIENT
  Age: 50 Year
  Sex: Female
  Weight: 114.86 kg

DRUGS (2)
  1. METHOTREXATE/2.5MG [Suspect]
     Active Substance: METHOTREXATE
     Indication: RHEUMATOID ARTHRITIS
     Dates: start: 20151012
  2. AMLODIPINE [Suspect]
     Active Substance: AMLODIPINE BESYLATE
     Indication: HYPERTENSION
     Dates: start: 20160123

REACTIONS (11)
  - Myalgia [None]
  - Abdominal pain upper [None]
  - C-reactive protein increased [None]
  - Headache [None]
  - Hepatic pain [None]
  - Haemorrhoids [None]
  - Nausea [None]
  - Iron deficiency [None]
  - Full blood count decreased [None]
  - Arthralgia [None]
  - Ocular icterus [None]

NARRATIVE: CASE EVENT DATE: 20151012
